FAERS Safety Report 15961220 (Version 2)
Quarter: 2019Q1

REPORT INFORMATION
  Report Type: Spontaneous
  Country: US (occurrence: US)
  Receive Date: 20190214
  Receipt Date: 20190218
  Transmission Date: 20190417
  Serious: No
  Sender: FDA-Public Use
  Company Number: US-PHARMING-PHAUS2019000118

PATIENT

DRUGS (3)
  1. RUCONEST [Suspect]
     Active Substance: HUMAN C1-ESTERASE INHIBITOR
     Indication: HEREDITARY ANGIOEDEMA
     Dosage: 2300 IU, PRESCRIBED PRN BUT DOSING PROPHYLACTICALLY
     Route: 042
     Dates: start: 20181206
  2. RUCONEST [Suspect]
     Active Substance: HUMAN C1-ESTERASE INHIBITOR
     Indication: PROPHYLAXIS
     Dosage: 2300 IU, PRN
     Route: 042
     Dates: start: 20171106, end: 20171129
  3. RUCONEST [Suspect]
     Active Substance: HUMAN C1-ESTERASE INHIBITOR
     Dosage: 2300 IU, EVERY 3-4 DAYS
     Route: 042
     Dates: start: 20171129, end: 20181206

REACTIONS (1)
  - Drug ineffective for unapproved indication [Recovered/Resolved]
